FAERS Safety Report 16117894 (Version 2)
Quarter: 2019Q1

REPORT INFORMATION
  Report Type: Spontaneous
  Country: US (occurrence: US)
  Receive Date: 20190326
  Receipt Date: 20190328
  Transmission Date: 20190418
  Serious: Yes (Other)
  Sender: FDA-Public Use
  Company Number: US-LEO PHARMA-317581

PATIENT
  Sex: Female

DRUGS (1)
  1. PICATO [Suspect]
     Active Substance: INGENOL MEBUTATE
     Indication: ACTINIC KERATOSIS
     Dosage: 1 APPLICATION
     Route: 061
     Dates: start: 20190312

REACTIONS (11)
  - Application site pain [Not Recovered/Not Resolved]
  - Inability to afford medication [Unknown]
  - Insomnia [Not Recovered/Not Resolved]
  - Application site scab [Recovering/Resolving]
  - Periorbital swelling [Recovering/Resolving]
  - Application site warmth [Not Recovered/Not Resolved]
  - Application site discharge [Recovering/Resolving]
  - Incorrect dose administered [Unknown]
  - Application site pustules [Not Recovered/Not Resolved]
  - Application site infection [Recovering/Resolving]
  - Application site vesicles [Recovering/Resolving]
